FAERS Safety Report 6133599-8 (Version None)
Quarter: 2009Q1

REPORT INFORMATION
  Report Type: 
  Country: None (occurrence: None)
  Receive Date: 20090324
  Receipt Date: 20090317
  Transmission Date: 20090719
  Serious: Yes (Death)
  Sender: FDA-Public Use
  Company Number: ADE2009-0483

PATIENT
  Sex: Female

DRUGS (2)
  1. METFORMIN HCL [Suspect]
     Dosage: ORAL
     Route: 048
  2. AMISULPRIDE [Suspect]
     Dosage: 500MG-2 DOSES DAILY-

REACTIONS (5)
  - DRUG TOXICITY [None]
  - MULTIPLE DRUG OVERDOSE [None]
  - PULMONARY CONGESTION [None]
  - RENAL IMPAIRMENT [None]
  - SUDDEN DEATH [None]
